FAERS Safety Report 8505879 (Version 5)
Quarter: 2012Q4

REPORT INFORMATION
  Report Type: 
  Country: US (occurrence: US)
  Receive Date: 20120412
  Receipt Date: 20120906
  Transmission Date: 20130627
  Serious: Yes (Life-Threatening, Hospitalization, Other)
  Sender: FDA-Public Use
  Company Number: US-ACTELION-A-US2012-63627

PATIENT
  Age: 52 Year
  Sex: Female

DRUGS (6)
  1. TRACLEER [Suspect]
     Indication: PULMONARY ARTERIAL HYPERTENSION
     Dosage: UNK mg, UNK
     Route: 048
  2. PRADAXA [Concomitant]
  3. ASPIRIN [Concomitant]
  4. ADCIRCA [Concomitant]
  5. DIGOXIN [Concomitant]
  6. POTASSIUM [Concomitant]

REACTIONS (17)
  - Lung disorder [Unknown]
  - Joint swelling [Unknown]
  - Back pain [Unknown]
  - Heart rate irregular [Unknown]
  - Blindness [Recovering/Resolving]
  - Cardiac disorder [Unknown]
  - Pulmonary hypertension [Unknown]
  - Cardiac failure congestive [Unknown]
  - Respiratory disorder [Unknown]
  - Chest pain [Unknown]
  - Pleural effusion [Unknown]
  - Dyspnoea [Unknown]
  - Oxygen saturation decreased [Unknown]
  - Nausea [Unknown]
  - Back pain [Unknown]
  - Fatigue [Unknown]
  - Headache [Unknown]
